FAERS Safety Report 10480500 (Version 1)
Quarter: 2014Q3

REPORT INFORMATION
  Report Type: Spontaneous
  Country: CN (occurrence: CN)
  Receive Date: 20140929
  Receipt Date: 20140929
  Transmission Date: 20150326
  Serious: Yes (Hospitalization, Disabling)
  Sender: FDA-Public Use
  Company Number: CN-JNJFOC-20140914075

PATIENT
  Age: 40 Year
  Sex: Female

DRUGS (4)
  1. NIZORAL [Suspect]
     Active Substance: KETOCONAZOLE
     Indication: FUNGAL INFECTION
     Route: 048
  2. NIZORAL [Suspect]
     Active Substance: KETOCONAZOLE
     Indication: TINEA PEDIS
     Route: 048
  3. NIZORAL [Suspect]
     Active Substance: KETOCONAZOLE
     Indication: FUNGAL INFECTION
     Route: 048
     Dates: start: 20130317
  4. NIZORAL [Suspect]
     Active Substance: KETOCONAZOLE
     Indication: TINEA PEDIS
     Route: 048
     Dates: start: 20130317

REACTIONS (9)
  - Hepatosplenomegaly [Recovering/Resolving]
  - Urine output decreased [Recovering/Resolving]
  - Oedema peripheral [Recovering/Resolving]
  - Hepatic function abnormal [Recovering/Resolving]
  - Abdominal pain [Recovering/Resolving]
  - Jaundice [Recovering/Resolving]
  - Drug-induced liver injury [Recovering/Resolving]
  - Pruritus [Recovering/Resolving]
  - Liver tenderness [Recovering/Resolving]

NARRATIVE: CASE EVENT DATE: 20130322
